FAERS Safety Report 6130511-2 (Version None)
Quarter: 2009Q1

REPORT INFORMATION
  Report Type: 
  Country: None (occurrence: None)
  Receive Date: 20090323
  Receipt Date: 20090311
  Transmission Date: 20090719
  Serious: Yes (Other)
  Sender: FDA-Public Use
  Company Number: 217476

PATIENT

DRUGS (5)
  1. CARBOPLATIN [Suspect]
     Indication: NON-SMALL CELL LUNG CANCER
     Dosage: GIVEN BEFORE ETOPOSIDE ON DAY 1,
  2. (TOPOTECAN) [Suspect]
     Indication: NON-SMALL CELL LUNG CANCER
     Dosage: .4 MG/M2, MONDAY THROUGH FRIDAY, INTRAVENOUS
     Route: 042
  3. (THERAPEUTIC RADIOPHARMACEUTICALS) [Suspect]
     Indication: NON-SMALL CELL LUNG CANCER
     Dosage: 63 GY IN 1.8 GY/FRACTION,
  4. ETOPOSIDE [Suspect]
     Indication: NON-SMALL CELL LUNG CANCER
     Dosage: 120 MG/M2, DAYS 1-3, INTRAVENOUS
     Route: 042
  5. DOCETAXEL [Suspect]
     Indication: NON-SMALL CELL LUNG CANCER
     Dosage: SEE IMAGE
     Route: 042

REACTIONS (5)
  - ANAEMIA [None]
  - ASPERGILLOSIS [None]
  - DRUG TOXICITY [None]
  - LYMPHOPENIA [None]
  - PNEUMONIA [None]
